FAERS Safety Report 5505988-3 (Version None)
Quarter: 2007Q4

REPORT INFORMATION
  Report Type: 
  Country: None (occurrence: None)
  Receive Date: 20071101
  Receipt Date: 20071022
  Transmission Date: 20080405
  Serious: Yes (Death, Hospitalization, Other)
  Sender: FDA-Public Use
  Company Number: 2007-03510

PATIENT
  Age: 56 Year
  Sex: Male
  Weight: 74 kg

DRUGS (4)
  1. VELCADE [Suspect]
     Indication: MULTIPLE MYELOMA
     Dosage: 1.30 MG/M2, INTRAVENOUS
     Route: 042
     Dates: start: 20070219, end: 20070412
  2. DEXAMETHASONE [Concomitant]
  3. ZOMETA [Concomitant]
  4. CALCIUM W/COLECALCIFEROL (COLECALCIFEROL, CALCIUM) [Concomitant]

REACTIONS (4)
  - ANAEMIA [None]
  - BLOOD CREATININE INCREASED [None]
  - POLYNEUROPATHY [None]
  - PROTEIN TOTAL INCREASED [None]
